FAERS Safety Report 18142694 (Version 1)
Quarter: 2020Q3

REPORT INFORMATION
  Report Type: Spontaneous
  Country: US (occurrence: US)
  Receive Date: 20200812
  Receipt Date: 20200812
  Transmission Date: 20201103
  Serious: Yes (Hospitalization)
  Sender: FDA-Public Use
  Company Number: US-AMERICAN REGENT INC-2020001612

PATIENT
  Age: 39 Year
  Sex: Male

DRUGS (3)
  1. ENOXAPARIN [Concomitant]
     Active Substance: ENOXAPARIN
     Indication: DEEP VEIN THROMBOSIS
     Dosage: 1 MG/KG, BID
     Route: 065
  2. PACLITAX NAB [Concomitant]
     Active Substance: PACLITAXEL
     Indication: PANCREATIC CARCINOMA METASTATIC
     Dosage: 125 MG/M2 (ON DAYS 1, 8, AND 15 OF A 28?DAY CYCLE)
     Route: 065
  3. GEMCITABINE. [Suspect]
     Active Substance: GEMCITABINE
     Indication: PANCREATIC CARCINOMA METASTATIC
     Dosage: 1000 MG/M2 (ON DAYS 1, 8, AND 15 OF A 28?DAY CYCLE)
     Route: 065

REACTIONS (1)
  - Thrombotic microangiopathy [Recovering/Resolving]
